FAERS Safety Report 12089156 (Version 1)
Quarter: 2016Q1

REPORT INFORMATION
  Report Type: Spontaneous
  Country: US (occurrence: None)
  Receive Date: 20160217
  Receipt Date: 20160217
  Transmission Date: 20160526
  Serious: No
  Sender: FDA-Public Use
  Company Number: None

PATIENT
  Age: 41 Year
  Sex: Female
  Weight: 88.91 kg

DRUGS (4)
  1. METFORMIN [Concomitant]
     Active Substance: METFORMIN HYDROCHLORIDE
  2. IBUPROFEN. [Concomitant]
     Active Substance: IBUPROFEN
  3. DAILY MULTIVITAMIN [Concomitant]
     Active Substance: VITAMINS
  4. TRULICITY [Suspect]
     Active Substance: DULAGLUTIDE
     Indication: DIABETES MELLITUS
     Route: 058
     Dates: start: 20160205, end: 20160216

REACTIONS (5)
  - Dyspepsia [None]
  - Nausea [None]
  - Abdominal pain upper [None]
  - Dysphagia [None]
  - Constipation [None]

NARRATIVE: CASE EVENT DATE: 20160216
